FAERS Safety Report 4772449-9 (Version None)
Quarter: 2005Q3

REPORT INFORMATION
  Report Type: 
  Country: None (occurrence: None)
  Receive Date: 20050919
  Receipt Date: 20050504
  Transmission Date: 20060218
  Serious: Yes (Other)
  Sender: FDA-Public Use
  Company Number: US-BRISTOL-MYERS SQUIBB COMPANY-12956769

PATIENT

DRUGS (1)
  1. CAFCIT [Suspect]

REACTIONS (1)
  - HAEMATOCHEZIA [None]
